FAERS Safety Report 10602671 (Version 2)
Quarter: 2015Q1

REPORT INFORMATION
  Report Type: Report from Study
  Country: CZ (occurrence: CZ)
  Receive Date: 20141124
  Receipt Date: 20150305
  Transmission Date: 20150720
  Serious: Yes (Hospitalization, Other)
  Sender: FDA-Public Use
  Company Number: CZ-GLAXOSMITHKLINE-CZ2014GSK023520

PATIENT
  Age: 62 Year
  Sex: Male
  Weight: 136 kg

DRUGS (13)
  1. DABRAFENIB [Suspect]
     Active Substance: DABRAFENIB
     Indication: METASTATIC MALIGNANT MELANOMA
     Dosage: 150 MG, UNK
     Dates: start: 20140729, end: 20141118
  2. DETRALEX [Concomitant]
     Active Substance: DIOSMIN\HESPERIDIN
     Indication: PERIPHERAL VASCULAR DISORDER
     Dosage: 1000 MG, QD
     Route: 048
  3. PRESID (CHLORHEXIDINE) [Concomitant]
  4. AUGMENTIN [Concomitant]
     Active Substance: AMOXICILLIN\CLAVULANATE POTASSIUM
  5. TRAMETINIB [Suspect]
     Active Substance: TRAMETINIB
     Dosage: 2 MG, QD
     Route: 048
     Dates: start: 20141127, end: 20150117
  6. SECTRAL [Concomitant]
     Active Substance: ACEBUTOLOL HYDROCHLORIDE
     Indication: HYPERTENSION
     Dosage: 400 MG, QD
     Route: 048
  7. FRAXIPARINE [Concomitant]
     Active Substance: NADROPARIN CALCIUM
     Indication: PROPHYLAXIS
     Dosage: 1 ML, QD
     Route: 058
     Dates: start: 20140701
  8. HYLAK [Concomitant]
  9. TRAMETINIB [Suspect]
     Active Substance: TRAMETINIB
     Indication: METASTATIC MALIGNANT MELANOMA
     Dosage: 2 MG, QD
     Dates: start: 20140729, end: 20141118
  10. FURON (FUROSEMID) [Concomitant]
     Indication: HYPERTENSION
     Dosage: 40 MG, QD
     Route: 048
  11. PIRAMIL [Concomitant]
  12. DABRAFENIB [Suspect]
     Active Substance: DABRAFENIB
     Dosage: 150 MG, BID
     Route: 048
     Dates: start: 20141127, end: 20150117
  13. VEROSPIRON [Concomitant]
     Active Substance: SPIRONOLACTONE
     Dosage: 25 MG, TID
     Route: 048

REACTIONS (1)
  - Pneumonia [Recovered/Resolved]

NARRATIVE: CASE EVENT DATE: 20141117
